FAERS Safety Report 8349654-8 (Version None)
Quarter: 2012Q2

REPORT INFORMATION
  Report Type: 
  Country: None (occurrence: None)
  Receive Date: 20120510
  Receipt Date: 20120504
  Transmission Date: 20120825
  Serious: Yes (Hospitalization)
  Sender: FDA-Public Use
  Company Number: IT-PFIZER INC-2012083817

PATIENT
  Age: 75 Year
  Sex: Male

DRUGS (5)
  1. ATORVASTATIN CALCIUM [Suspect]
     Indication: ACUTE CORONARY SYNDROME
     Dosage: 80 MG, DAILY
     Route: 048
     Dates: start: 20120319
  2. RANITIDINE [Concomitant]
     Dosage: 300 MG, UNK
  3. VALSARTAN [Concomitant]
     Dosage: 160 MG, UNK
  4. FOLIC ACID [Concomitant]
     Dosage: 1 DF, UNK
  5. BRILIQUE [Suspect]
     Indication: ACUTE CORONARY SYNDROME
     Dosage: 180 MG, DAILY
     Route: 048
     Dates: start: 20120324

REACTIONS (1)
  - ERYTHEMA [None]
